FAERS Safety Report 18600130 (Version 1)
Quarter: 2020Q4

REPORT INFORMATION
  Report Type: Spontaneous
  Country: GB (occurrence: GB)
  Receive Date: 20201210
  Receipt Date: 20201210
  Transmission Date: 20210114
  Serious: Yes (Other)
  Sender: FDA-Public Use
  Company Number: GB-MYLANLABS-2020M1099722

PATIENT
  Age: 67 Year
  Sex: Female
  Weight: 74.38 kg

DRUGS (13)
  1. IBUPROFEN. [Concomitant]
     Active Substance: IBUPROFEN
     Dosage: UNK
  2. VALERIANA                          /01561601/ [Concomitant]
     Active Substance: VALERIAN
     Dosage: UNK
  3. VITAMIN D                          /00107901/ [Concomitant]
     Active Substance: ERGOCALCIFEROL
     Dosage: UNK
  4. ETORICOXIB. [Concomitant]
     Active Substance: ETORICOXIB
     Dosage: 60 MILLIGRAM
  5. MONASCUS PURPUREUS [Concomitant]
     Active Substance: RED YEAST
     Dosage: UNK
  6. PASSIFLORA                         /01458101/ [Concomitant]
     Dosage: UNK
  7. FYBOGEL [Concomitant]
     Active Substance: PLANTAGO OVATA SEED
     Dosage: UNK
  8. MAGNESIUM CITRATE. [Concomitant]
     Active Substance: MAGNESIUM CITRATE
     Dosage: UNK
  9. PROGESTERONE. [Concomitant]
     Active Substance: PROGESTERONE
     Dosage: UNK
     Route: 061
  10. MELATONIN [Concomitant]
     Active Substance: MELATONIN
     Dosage: UNK
  11. TAMOXIFEN [Suspect]
     Active Substance: TAMOXIFEN
     Indication: BREAST CANCER
     Dosage: 20 MILLIGRAM
     Route: 048
     Dates: start: 200105
  12. CANNABIDIOL [Concomitant]
     Active Substance: CANNABIDIOL
     Dosage: CBD
  13. GAVISCON                           /00237601/ [Concomitant]
     Active Substance: ALUMINUM HYDROXIDE\MAGNESIUM CARBONATE
     Dosage: UNK

REACTIONS (11)
  - Menopausal symptoms [Unknown]
  - Pain [Unknown]
  - Anxiety [Unknown]
  - Sleep disorder [Unknown]
  - Groin pain [Unknown]
  - Hot flush [Unknown]
  - Depression [Unknown]
  - Joint stiffness [Unknown]
  - Muscle spasms [Unknown]
  - Abnormal weight gain [Unknown]
  - Vulvovaginal dryness [Unknown]

NARRATIVE: CASE EVENT DATE: 20140514
